FAERS Safety Report 22345170 (Version 1)
Quarter: 2023Q2

REPORT INFORMATION
  Report Type: Spontaneous
  Country: CN (occurrence: CN)
  Receive Date: 20230519
  Receipt Date: 20230519
  Transmission Date: 20230722
  Serious: Yes (Other)
  Sender: FDA-Public Use
  Company Number: CN-ORGANON-O2305CHN001601

PATIENT
  Sex: Female

DRUGS (1)
  1. FOSAMAX [Suspect]
     Active Substance: ALENDRONATE SODIUM
     Dosage: UNK
     Route: 048
     Dates: start: 2020

REACTIONS (3)
  - Diabetes mellitus [Unknown]
  - Urinary tract infection [Unknown]
  - Ulcer [Not Recovered/Not Resolved]

NARRATIVE: CASE EVENT DATE: 20230514
